FAERS Safety Report 25510450 (Version 1)
Quarter: 2025Q3

REPORT INFORMATION
  Report Type: Spontaneous
  Country: US (occurrence: US)
  Receive Date: 20250703
  Receipt Date: 20250703
  Transmission Date: 20251021
  Serious: No
  Sender: VERTEX
  Company Number: US-VERTEX PHARMACEUTICALS-2025-010750

PATIENT
  Age: 37 Year

DRUGS (1)
  1. TRIKAFTA [Suspect]
     Active Substance: ELEXACAFTOR\IVACAFTOR\TEZACAFTOR
     Indication: Cystic fibrosis
     Route: 048

REACTIONS (7)
  - Panic reaction [Not Recovered/Not Resolved]
  - Fatigue [Not Recovered/Not Resolved]
  - Dyspnoea [Not Recovered/Not Resolved]
  - Social anxiety disorder [Not Recovered/Not Resolved]
  - Body dysmorphic disorder [Not Recovered/Not Resolved]
  - Oropharyngeal pain [Unknown]
  - Chest discomfort [Unknown]

NARRATIVE: CASE EVENT DATE: 20250101
